FAERS Safety Report 16402113 (Version 3)
Quarter: 2019Q3

REPORT INFORMATION
  Report Type: Spontaneous
  Country: JP (occurrence: JP)
  Receive Date: 20190607
  Receipt Date: 20190902
  Transmission Date: 20191004
  Serious: Yes (Hospitalization, Disabling, Other)
  Sender: FDA-Public Use
  Company Number: PHJP2019JP003910

PATIENT
  Age: 77 Year
  Sex: Male
  Weight: 53.1 kg

DRUGS (14)
  1. GLIMEPIRIDE. [Suspect]
     Active Substance: GLIMEPIRIDE
     Dosage: 1 MG, QD
     Route: 048
     Dates: start: 20150612, end: 20181008
  2. METFORMIN [Concomitant]
     Active Substance: METFORMIN HYDROCHLORIDE
     Indication: TYPE 2 DIABETES MELLITUS
     Dosage: 250 MG, TID
     Route: 048
     Dates: start: 20100227, end: 20110301
  3. NEXIUM [Concomitant]
     Active Substance: ESOMEPRAZOLE MAGNESIUM
     Indication: GASTROOESOPHAGEAL REFLUX DISEASE
     Dosage: 20 MG, QD
     Route: 048
  4. TIZANIDINE. [Concomitant]
     Active Substance: TIZANIDINE
     Indication: PRODUCT USED FOR UNKNOWN INDICATION
     Dosage: 1 MG, QD
     Route: 048
  5. GLIMEPIRIDE. [Suspect]
     Active Substance: GLIMEPIRIDE
     Indication: TYPE 2 DIABETES MELLITUS
     Dosage: 0.5 MG, QD
     Route: 048
     Dates: start: 20130227, end: 20150611
  6. EQUMET [Suspect]
     Active Substance: METFORMIN HYDROCHLORIDE\VILDAGLIPTIN
     Indication: TYPE 2 DIABETES MELLITUS
     Route: 048
     Dates: start: 20160314, end: 20180117
  7. SEIBULE [Concomitant]
     Active Substance: MIGLITOL
     Indication: TYPE 2 DIABETES MELLITUS
     Dosage: 75 MG, TID
     Route: 048
     Dates: start: 20171222, end: 20181008
  8. EQUMET [Suspect]
     Active Substance: METFORMIN HYDROCHLORIDE\VILDAGLIPTIN
     Dosage: 1 DF, BID
     Route: 048
     Dates: start: 20180118, end: 20190129
  9. JARDIANCE [Suspect]
     Active Substance: EMPAGLIFLOZIN
     Indication: TYPE 2 DIABETES MELLITUS
     Dosage: 1 DF, QD
     Route: 048
     Dates: start: 20190318, end: 20190331
  10. LIMAPROST ALFADEX [Concomitant]
     Active Substance: LIMAPROST
     Indication: TYPE 2 DIABETES MELLITUS
     Dosage: 5 MG, TID
     Route: 048
  11. LEVOFLOXACIN. [Concomitant]
     Active Substance: LEVOFLOXACIN
     Indication: PNEUMONIA
     Dosage: 500 MG, QD
     Route: 048
  12. GLIMEPIRIDE. [Suspect]
     Active Substance: GLIMEPIRIDE
     Dosage: 3 MG, QD
     Route: 048
     Dates: start: 20180118, end: 20190125
  13. GLACTIV [Suspect]
     Active Substance: SITAGLIPTIN
     Indication: TYPE 2 DIABETES MELLITUS
     Dosage: 50 MG, QD
     Route: 048
     Dates: start: 20120510, end: 20160313
  14. LIPITOL [Concomitant]
     Indication: HYPERLIPIDAEMIA
     Dosage: 10 MG, QD
     Route: 048

REACTIONS (8)
  - Respiratory failure [Unknown]
  - Hypoglycaemia [Recovered/Resolved]
  - Altered state of consciousness [Unknown]
  - Dyspnoea [Unknown]
  - Interstitial lung disease [Recovered/Resolved with Sequelae]
  - Decreased appetite [Unknown]
  - Euglycaemic diabetic ketoacidosis [Recovering/Resolving]
  - Influenza [Recovered/Resolved]

NARRATIVE: CASE EVENT DATE: 201812
